FAERS Safety Report 6763317-1 (Version None)
Quarter: 2010Q2

REPORT INFORMATION
  Report Type: 
  Country: None (occurrence: None)
  Receive Date: 20100608
  Receipt Date: 20100608
  Transmission Date: 20101027
  Serious: Yes (Hospitalization)
  Sender: FDA-Public Use
  Company Number: None

PATIENT
  Sex: Female
  Weight: 65.7 kg

DRUGS (3)
  1. CARBOPLATIN [Suspect]
  2. ERBITUX [Suspect]
  3. TAXOL [Suspect]

REACTIONS (3)
  - ASTHENIA [None]
  - DIZZINESS [None]
  - LETHARGY [None]
